FAERS Safety Report 20471407 (Version 1)
Quarter: 2022Q1

REPORT INFORMATION
  Report Type: Spontaneous
  Country: US (occurrence: US)
  Receive Date: 20220214
  Receipt Date: 20220214
  Transmission Date: 20220423
  Serious: No
  Sender: FDA-Public Use
  Company Number: US-SA-SAC20220207000222

PATIENT
  Sex: Male

DRUGS (9)
  1. DUPIXENT [Suspect]
     Active Substance: DUPILUMAB
     Indication: Dermatitis atopic
     Dosage: 300 MG, QOW
     Route: 058
     Dates: start: 20210225
  2. ALLOPURINOL [Concomitant]
     Active Substance: ALLOPURINOL
  3. GLIPIZIDE [Concomitant]
     Active Substance: GLIPIZIDE
  4. INVOKANA [Concomitant]
     Active Substance: CANAGLIFLOZIN
  5. JANUMET XR [Concomitant]
     Active Substance: METFORMIN HYDROCHLORIDE\SITAGLIPTIN PHOSPHATE
     Dosage: 50-1000
  6. LISINOPRIL [Concomitant]
     Active Substance: LISINOPRIL
  7. PIOGLITAZONE [Concomitant]
     Active Substance: PIOGLITAZONE
  8. SIMVASTATIN [Concomitant]
     Active Substance: SIMVASTATIN
  9. LEVOTHYROXINE [Concomitant]
     Active Substance: LEVOTHYROXINE

REACTIONS (1)
  - Dermatitis atopic [Unknown]
